FAERS Safety Report 12226498 (Version 1)
Quarter: 2016Q1

REPORT INFORMATION
  Report Type: Spontaneous
  Country: BR (occurrence: BR)
  Receive Date: 20160331
  Receipt Date: 20160331
  Transmission Date: 20160526
  Serious: Yes (Death, Hospitalization, Other)
  Sender: FDA-Public Use
  Company Number: BR-TEVA-646873ISR

PATIENT
  Age: 57 Year
  Sex: Male
  Weight: 89.4 kg

DRUGS (7)
  1. TEVAETOPO [Suspect]
     Active Substance: ETOPOSIDE
     Indication: NON-HODGKIN^S LYMPHOMA
     Route: 042
     Dates: start: 20160127, end: 20160208
  2. FAULDLEUCO [Suspect]
     Active Substance: LEUCOVORIN CALCIUM
     Indication: NON-HODGKIN^S LYMPHOMA
     Dosage: 24.9714 MILLIGRAM DAILY;
     Route: 042
     Dates: start: 20160127, end: 20160208
  3. EFFEXOR [Concomitant]
     Active Substance: VENLAFAXINE HYDROCHLORIDE
     Dosage: 75 MILLIGRAM DAILY;
     Dates: end: 20160208
  4. FAULDMETRO [Suspect]
     Active Substance: METHOTREXATE SODIUM
     Indication: NON-HODGKIN^S LYMPHOMA
     Route: 042
     Dates: start: 20160127, end: 20160208
  5. HOLOXANE [Suspect]
     Active Substance: IFOSFAMIDE
     Indication: NON-HODGKIN^S LYMPHOMA
     Route: 042
     Dates: start: 20160127, end: 20160208
  6. RIVOTRIL [Concomitant]
     Active Substance: CLONAZEPAM
     Dosage: 4 DROPS ONCE A DAY
     Dates: end: 20160208
  7. MITEXAN [Suspect]
     Active Substance: MESNA
     Indication: NON-HODGKIN^S LYMPHOMA
     Route: 042
     Dates: start: 20160127, end: 20160208

REACTIONS (8)
  - Febrile neutropenia [Unknown]
  - Septic shock [Unknown]
  - Coagulopathy [Unknown]
  - Pneumonia [Fatal]
  - Toxicity to various agents [None]
  - Renal failure [Unknown]
  - Mucosal inflammation [Unknown]
  - Bone marrow failure [Unknown]

NARRATIVE: CASE EVENT DATE: 2016
